FAERS Safety Report 15842564 (Version 1)
Quarter: 2019Q1

REPORT INFORMATION
  Report Type: Spontaneous
  Country: GB (occurrence: GB)
  Receive Date: 20190118
  Receipt Date: 20190118
  Transmission Date: 20190417
  Serious: Yes (Life-Threatening, Hospitalization, Other)
  Sender: FDA-Public Use
  Company Number: GB-TEVA-154836ISR

PATIENT
  Age: 29 Year
  Sex: Male

DRUGS (2)
  1. LAMOTRIGINE. [Suspect]
     Active Substance: LAMOTRIGINE
     Route: 048
  2. PREGABALIN. [Suspect]
     Active Substance: PREGABALIN

REACTIONS (9)
  - Acute respiratory distress syndrome [Recovered/Resolved]
  - Sinus tachycardia [Recovered/Resolved]
  - Dyskinesia [Recovered/Resolved]
  - Intentional overdose [Unknown]
  - Grimacing [Recovered/Resolved]
  - Urinary retention [Recovered/Resolved]
  - Pancytopenia [Recovered/Resolved]
  - Intentional self-injury [Unknown]
  - Unresponsive to stimuli [Recovered/Resolved]
